FAERS Safety Report 7204907-1 (Version None)
Quarter: 2010Q4

REPORT INFORMATION
  Report Type: 
  Country: None (occurrence: None)
  Receive Date: 20101230
  Receipt Date: 20101222
  Transmission Date: 20110411
  Serious: Yes (Other)
  Sender: FDA-Public Use
  Company Number: US-JNJCH-2010029503

PATIENT
  Age: 70 Year
  Sex: Female
  Weight: 68 kg

DRUGS (2)
  1. LISTERINE ANTISEPTIC MOUTHWASH [Suspect]
     Indication: DENTAL DISORDER PROPHYLAXIS
     Dosage: TEXT:ONCE
     Route: 048
  2. ALCOHOL [Suspect]
     Indication: ALCOHOL USE
     Dosage: TEXT:QUARTER OF PINT
     Route: 048

REACTIONS (3)
  - BREATH ALCOHOL TEST POSITIVE [None]
  - INCORRECT ROUTE OF DRUG ADMINISTRATION [None]
  - ROAD TRAFFIC ACCIDENT [None]
